FAERS Safety Report 20963804 (Version 2)
Quarter: 2022Q2

REPORT INFORMATION
  Report Type: Report from Study
  Country: US (occurrence: US)
  Receive Date: 20220615
  Receipt Date: 20220623
  Transmission Date: 20220720
  Serious: Yes (Hospitalization, Other)
  Sender: FDA-Public Use
  Company Number: US-Taiho Oncology Inc-EU-2022-01465

PATIENT
  Sex: Male

DRUGS (8)
  1. LONSURF [Suspect]
     Active Substance: TIPIRACIL HYDROCHLORIDE\TRIFLURIDINE
     Indication: Rectal cancer
     Dosage: CYCLE UNKNOWN
     Route: 048
     Dates: start: 20220420, end: 20220603
  2. ELIQUIS [Concomitant]
     Active Substance: APIXABAN
  3. ZOFRAN [Concomitant]
     Active Substance: ONDANSETRON HYDROCHLORIDE
  4. LOMOTIL [Concomitant]
     Active Substance: ATROPINE SULFATE\DIPHENOXYLATE HYDROCHLORIDE
  5. HYDROCHLOROTHIAZIDE [Concomitant]
     Active Substance: HYDROCHLOROTHIAZIDE
  6. LYRICA [Concomitant]
     Active Substance: PREGABALIN
  7. HYDROCODONE [Concomitant]
     Active Substance: HYDROCODONE
  8. MIRTAZAPINE [Concomitant]
     Active Substance: MIRTAZAPINE

REACTIONS (7)
  - Central nervous system lesion [Unknown]
  - Hemiparesis [Unknown]
  - Speech disorder [Unknown]
  - Balance disorder [Unknown]
  - Dyspnoea [Unknown]
  - Asthenia [Unknown]
  - Therapy interrupted [Unknown]
